FAERS Safety Report 14868118 (Version 1)
Quarter: 2018Q2

REPORT INFORMATION
  Report Type: Spontaneous
  Country: FR (occurrence: FR)
  Receive Date: 20180509
  Receipt Date: 20180509
  Transmission Date: 20180711
  Serious: Yes (Congenital Anomaly)
  Sender: FDA-Public Use
  Company Number: FR-TEVA-2018-FR-890855

PATIENT
  Age: 0 Day
  Sex: Male
  Weight: 1.2 kg

DRUGS (3)
  1. PROPRANOLOL [Suspect]
     Active Substance: PROPRANOLOL HYDROCHLORIDE
     Indication: MIGRAINE
     Dosage: 80 MILLIGRAM DAILY;
     Route: 064
  2. ASPEGIC [Concomitant]
     Active Substance: ASPIRIN DL-LYSINE
     Indication: ABORTION SPONTANEOUS
     Route: 064
  3. LEVOTHYROX [Suspect]
     Active Substance: LEVOTHYROXINE
     Indication: THYROIDITIS CHRONIC
     Dosage: 75 MICROGRAM DAILY; SLIGHT INCREASE IN DOSAGE DURING G SAI
     Route: 064

REACTIONS (2)
  - Foetal growth restriction [Recovering/Resolving]
  - Foetal exposure during pregnancy [Unknown]
